FAERS Safety Report 9244184 (Version 1)
Quarter: 2013Q1

REPORT INFORMATION
  Report Type: Spontaneous
  Country: US (occurrence: None)
  Receive Date: 20121123
  Receipt Date: 20121123
  Transmission Date: 20140127
  Serious: No
  Sender: FDA-Public Use
  Company Number: 362889

PATIENT
  Age: 71 Year
  Sex: Female

DRUGS (3)
  1. VICTOZA [Suspect]
     Indication: TYPE 2 DIABETES MELLITUS
     Route: 058
     Dates: start: 2011
  2. LEVEMIR (INSULIN DETEMIR) [Concomitant]
  3. NOVOLOG (INSULIN ASPART) [Concomitant]

REACTIONS (1)
  - Constipation [None]
